FAERS Safety Report 5402826-4 (Version None)
Quarter: 2007Q3

REPORT INFORMATION
  Report Type: 
  Country: None (occurrence: None)
  Receive Date: 20070730
  Receipt Date: 20070723
  Transmission Date: 20080115
  Serious: Yes (Other)
  Sender: FDA-Public Use
  Company Number: CHPA2007US05017

PATIENT
  Age: 44 Year
  Sex: Female
  Weight: 99.7913 kg

DRUGS (5)
  1. TRANSDERM SCOP [Suspect]
     Indication: DIZZINESS
     Dosage: PRN, TRANSDERMAL
     Route: 062
     Dates: end: 20070324
  2. CLARINEX/USA/(DESLORATADINE) [Suspect]
  3. FLONASE (FLUTICASWONE PROPIONATE) [Concomitant]
  4. CONTRACEPTIVES NOS (NO INGREDIENTS/SUBSTANCES) [Concomitant]
  5. XANAX [Concomitant]

REACTIONS (3)
  - ANXIETY [None]
  - CHEST DISCOMFORT [None]
  - DEHYDRATION [None]
